FAERS Safety Report 9396048 (Version 3)
Quarter: 2013Q3

REPORT INFORMATION
  Report Type: Spontaneous
  Country: IT (occurrence: None)
  Receive Date: 20130708
  Receipt Date: 20130729
  Transmission Date: 20140515
  Serious: Yes (Other)
  Sender: FDA-Public Use
  Company Number: AUR-APL-2013-05716

PATIENT
  Age: 78 Year
  Sex: Female

DRUGS (7)
  1. RAMIPRIL [Suspect]
     Indication: HYPERTENSION
     Dosage: 1 DOSAGE FORMS (1 DOSAGE FORMS, 1 IN 1 D), ORAL
     Route: 048
     Dates: start: 20130401, end: 20130518
  2. DILZENE (DILTIAZEM HYDROCHLORIDE) [Concomitant]
  3. CARDIOASPIRIN (ACETYLSALICYLIC ACID) [Concomitant]
  4. TIOTROPIUM BROMIDE (TIOTROPIUM BROMIDE) [Concomitant]
  5. CARDURA (DOXAZOSIN MESILATE) [Concomitant]
  6. SPIRIVA (TIOTROPIUM BROMIDE) (TIOTROPIUM BROMIDE) [Concomitant]
  7. LANSOX (LANSOPRAZOLE) [Concomitant]
     Indication: HYPOTENSION
     Dosage: 1 DOSAGE FORMS (1 DOSAGE FORMS, 1 IN 1D) ORAL
     Dates: start: 20130401, end: 20130518

REACTIONS (8)
  - Asthenia [None]
  - Malaise [None]
  - Hyponatraemia [None]
  - Hyperkalaemia [None]
  - Bradycardia [None]
  - Hypoglycaemia [None]
  - Blood pressure systolic increased [None]
  - Blood pressure diastolic decreased [None]
